FAERS Safety Report 18740573 (Version 1)
Quarter: 2021Q1

REPORT INFORMATION
  Report Type: Spontaneous
  Country: FR (occurrence: FR)
  Receive Date: 20210114
  Receipt Date: 20210114
  Transmission Date: 20210419
  Serious: Yes (Hospitalization)
  Sender: FDA-Public Use
  Company Number: FR-LEO PHARMA-334184

PATIENT
  Age: 39 Year
  Sex: Female
  Weight: 50 kg

DRUGS (2)
  1. PROTOPIC [Suspect]
     Active Substance: TACROLIMUS
     Route: 003
     Dates: start: 20100719, end: 20101031
  2. PROTOPIC [Suspect]
     Active Substance: TACROLIMUS
     Indication: DERMATITIS ATOPIC
     Route: 003
     Dates: start: 2006, end: 2010

REACTIONS (2)
  - Hodgkin^s disease [Recovered/Resolved with Sequelae]
  - Inappropriate schedule of product administration [Unknown]

NARRATIVE: CASE EVENT DATE: 201203
